FAERS Safety Report 12503598 (Version 1)
Quarter: 2016Q2

REPORT INFORMATION
  Report Type: Spontaneous
  Country: US (occurrence: None)
  Receive Date: 20160627
  Receipt Date: 20160627
  Transmission Date: 20160815
  Serious: Yes (Other)
  Sender: FDA-Public Use
  Company Number: None

PATIENT
  Age: 14 Year
  Sex: Male
  Weight: 63.5 kg

DRUGS (3)
  1. ZYRTEC [Concomitant]
     Active Substance: CETIRIZINE HYDROCHLORIDE
  2. RESPERIDONE [Concomitant]
     Active Substance: RISPERIDONE
  3. IC GUANFACINE HCL ER, 3 MG [Suspect]
     Active Substance: GUANFACINE HYDROCHLORIDE
     Indication: ATTENTION DEFICIT/HYPERACTIVITY DISORDER
     Dosage: 1 TABLET(S) IN THE MORNING TAKEN BY MONTH
     Route: 048
     Dates: start: 20160401, end: 20160622

REACTIONS (4)
  - Anger [None]
  - Product substitution issue [None]
  - Mood altered [None]
  - Agitation [None]

NARRATIVE: CASE EVENT DATE: 20160615
